FAERS Safety Report 4781118-0 (Version None)
Quarter: 2005Q3

REPORT INFORMATION
  Report Type: 
  Country: None (occurrence: None)
  Receive Date: 20050926
  Receipt Date: 20050926
  Transmission Date: 20060218
  Serious: Yes (Hospitalization, Other)
  Sender: FDA-Public Use
  Company Number: None

PATIENT
  Sex: Male
  Weight: 71.9 kg

DRUGS (3)
  1. METHOTREXATE [Suspect]
     Indication: ACUTE LYMPHOCYTIC LEUKAEMIA
     Dosage: SEE IMAGE
     Dates: start: 20050901, end: 20050919
  2. METHOTREXATE [Suspect]
     Indication: ACUTE LYMPHOCYTIC LEUKAEMIA
     Dosage: SEE IMAGE
     Dates: start: 20050825
  3. DEXAMETHASONE [Suspect]
     Dosage: SEE IMAGE
     Dates: start: 20050825, end: 20050906

REACTIONS (3)
  - DIPLEGIA [None]
  - HYPOAESTHESIA [None]
  - PARAESTHESIA [None]
